FAERS Safety Report 18876797 (Version 3)
Quarter: 2022Q4

REPORT INFORMATION
  Report Type: Spontaneous
  Country: US (occurrence: US)
  Receive Date: 20210210
  Receipt Date: 20221125
  Transmission Date: 20230112
  Serious: Yes (Other)
  Sender: FDA-Public Use
  Company Number: US-ELI_LILLY_AND_COMPANY-US201809009866

PATIENT
  Age: 66 Year
  Sex: Male

DRUGS (19)
  1. CIALIS [Interacting]
     Active Substance: TADALAFIL
     Indication: Product used for unknown indication
     Dosage: UNK UNK, UNKNOWN
     Route: 065
  2. XTANDI [Interacting]
     Active Substance: ENZALUTAMIDE
     Indication: Prostate cancer
     Dosage: 160 MG, DAILY
     Route: 048
     Dates: start: 20180825
  3. XTANDI [Interacting]
     Active Substance: ENZALUTAMIDE
     Dosage: 160 MG, DAILY
     Route: 048
     Dates: start: 20180825
  4. XTANDI [Interacting]
     Active Substance: ENZALUTAMIDE
     Dosage: 160 MG, DAILY
     Route: 048
     Dates: start: 20180825
  5. XTANDI [Interacting]
     Active Substance: ENZALUTAMIDE
     Dosage: 160 MG, DAILY
     Route: 048
  6. XTANDI [Interacting]
     Active Substance: ENZALUTAMIDE
     Dosage: 160 MG, DAILY
     Route: 048
  7. XTANDI [Interacting]
     Active Substance: ENZALUTAMIDE
     Dosage: 160 MG, DAILY
     Route: 048
  8. LUPRON DEPOT [Interacting]
     Active Substance: LEUPROLIDE ACETATE
     Indication: Product used for unknown indication
     Dosage: 30 MG, OTHER, EVERY 6 MONTHS
     Route: 065
  9. MELATONIN [Concomitant]
     Active Substance: MELATONIN
     Indication: Product used for unknown indication
     Dosage: UNK, UNKNOWN
     Route: 065
  10. CALCIUM [Concomitant]
     Active Substance: CALCIUM
     Indication: Product used for unknown indication
     Dosage: 600 MG, UNKNOWN
     Route: 065
  11. CENTRUM [ASCORBIC ACID;BIOTIN;CALCIUM;CALCIUM [Concomitant]
     Indication: Product used for unknown indication
     Dosage: UNK, UNKNOWN
     Route: 065
  12. DIETARY SUPPLEMENT [Concomitant]
     Active Substance: DIETARY SUPPLEMENT
     Indication: Product used for unknown indication
     Dosage: 200 MG, UNKNOWN
     Route: 065
  13. FISH OIL [Concomitant]
     Active Substance: FISH OIL
     Indication: Product used for unknown indication
     Dosage: 1200 MG, UNKNOWN
     Route: 066
  14. GREEN TEA EXTRACT [CAMELLIA SINENSIS] [Concomitant]
     Indication: Product used for unknown indication
     Dosage: UNK, UNKNOWN
     Route: 065
  15. MEGASTROL [Concomitant]
     Indication: Product used for unknown indication
     Dosage: UNK, UNKNOWN
     Route: 065
  16. ROSUVASTATIN [Concomitant]
     Active Substance: ROSUVASTATIN
     Indication: Product used for unknown indication
     Dosage: 20 MG, UNKNOWN
     Route: 065
  17. VITAMIN D3 [Concomitant]
     Active Substance: CHOLECALCIFEROL
     Indication: Product used for unknown indication
     Dosage: UNK, UNKNOWN
     Route: 065
  18. XGEVA [Concomitant]
     Active Substance: DENOSUMAB
     Indication: Product used for unknown indication
     Dosage: UNK, UNKNOWN
     Route: 065
  19. TRAMADOL HCL [Concomitant]
     Active Substance: TRAMADOL HYDROCHLORIDE
     Indication: Product used for unknown indication
     Dosage: UNK UNK, UNKNOWN

REACTIONS (14)
  - Intervertebral disc degeneration [Unknown]
  - Prostatic specific antigen increased [Recovered/Resolved]
  - Pollakiuria [Not Recovered/Not Resolved]
  - Insomnia [Unknown]
  - Neck pain [Not Recovered/Not Resolved]
  - Abdominal pain upper [Not Recovered/Not Resolved]
  - Diarrhoea [Not Recovered/Not Resolved]
  - Abdominal discomfort [Not Recovered/Not Resolved]
  - Fatigue [Not Recovered/Not Resolved]
  - Back pain [Unknown]
  - Drug interaction [Unknown]
  - Back pain [Not Recovered/Not Resolved]
  - Pain in extremity [Not Recovered/Not Resolved]
  - Asthenia [Not Recovered/Not Resolved]

NARRATIVE: CASE EVENT DATE: 20180828
